FAERS Safety Report 6301243-2 (Version None)
Quarter: 2009Q3

REPORT INFORMATION
  Report Type: 
  Country: None (occurrence: None)
  Receive Date: 20090807
  Receipt Date: 20080205
  Transmission Date: 20100115
  Serious: Yes (Other)
  Sender: FDA-Public Use
  Company Number: US-ASTRAZENECA-2006UW25850

PATIENT
  Age: 17989 Day
  Sex: Female
  Weight: 70.3 kg

DRUGS (7)
  1. SEROQUEL [Suspect]
     Dosage: AT BED TIME ONLY
     Route: 048
     Dates: start: 20021029
  2. NEURONTIN [Concomitant]
     Dosage: 300 MG TID, 1 QAM 1 PRN 1 QHS
     Dates: start: 20020207
  3. METHADONE [Concomitant]
     Dosage: 5-20 MG
     Dates: start: 20020207
  4. AVANDIA [Concomitant]
     Dosage: 8 MG 1 ASP DAILY
     Dates: start: 20010514
  5. WELLBUTRIN [Concomitant]
     Dates: start: 20030130
  6. KLONOPIN [Concomitant]
     Dosage: 0.5 MG BID, PRN
     Dates: start: 20021002
  7. BACLOFEN [Concomitant]
     Dates: start: 20021029

REACTIONS (2)
  - DIABETES MELLITUS [None]
  - NEUROPATHY PERIPHERAL [None]
